FAERS Safety Report 5918259-8 (Version None)
Quarter: 2008Q4

REPORT INFORMATION
  Report Type: 
  Country: None (occurrence: None)
  Receive Date: 20081010
  Receipt Date: 20080929
  Transmission Date: 20090506
  Serious: Yes (Other)
  Sender: FDA-Public Use
  Company Number: 08-001571

PATIENT
  Age: 50 Year
  Sex: Female
  Weight: 93 kg

DRUGS (1)
  1. LOESTRIN 24 FE [Suspect]
     Indication: HAEMOGLOBIN DECREASED
     Dosage: 20/1000 UG QD, ORAL
     Route: 048
     Dates: start: 20071111, end: 20080108

REACTIONS (7)
  - ABDOMINAL DISTENSION [None]
  - ABDOMINAL TENDERNESS [None]
  - BLOOD GLUCOSE INCREASED [None]
  - DEPRESSION [None]
  - GALLBLADDER DISORDER [None]
  - JAUNDICE [None]
  - WEIGHT DECREASED [None]
